FAERS Safety Report 8546384 (Version 2)
Quarter: 2013Q1

REPORT INFORMATION
  Report Type: Spontaneous
  Country: US (occurrence: US)
  Receive Date: 20120504
  Receipt Date: 20130107
  Transmission Date: 20140127
  Serious: Yes (Hospitalization)
  Sender: FDA-Public Use
  Company Number: US-BAYER-2012-041631

PATIENT
  Age: 18 Year
  Sex: Female
  Weight: 65.76 kg

DRUGS (14)
  1. YASMIN [Suspect]
     Indication: MENSTRUAL CYCLE MANAGEMENT
     Dosage: UNK
     Dates: start: 200406, end: 200910
  2. YASMIN [Suspect]
     Indication: ACNE
  3. YASMIN [Suspect]
     Indication: CONTRACEPTION
  4. OCELLA [Suspect]
     Indication: MENSTRUAL CYCLE MANAGEMENT
     Dosage: UNK
     Dates: start: 200406, end: 200910
  5. OCELLA [Suspect]
     Indication: ACNE
  6. OCELLA [Suspect]
     Indication: CONTRACEPTION
  7. PRILOSEC [Concomitant]
     Indication: DYSPEPSIA
  8. MAXAIR [Concomitant]
  9. IMITREX [Concomitant]
     Indication: MIGRAINE
  10. TOPAMAX [Concomitant]
     Indication: MIGRAINE
     Dosage: 100 MG, DAILY
     Route: 048
  11. EXCEDRIN [CAFFEINE,PARACETAMOL] [Concomitant]
     Indication: HEADACHE
  12. ESOMEPRAZOLE [Concomitant]
  13. NEXIUM [Concomitant]
  14. CARAFATE [Concomitant]

REACTIONS (7)
  - Gallbladder disorder [None]
  - Biliary dyskinesia [None]
  - Injury [None]
  - Pain [None]
  - General physical health deterioration [None]
  - Emotional distress [None]
  - Postoperative adhesion [None]
